FAERS Safety Report 9788832 (Version 1)
Quarter: 2013Q4

REPORT INFORMATION
  Report Type: Spontaneous
  Country: US (occurrence: US)
  Receive Date: 20131230
  Receipt Date: 20131230
  Transmission Date: 20140711
  Serious: Yes (Other)
  Sender: FDA-Public Use
  Company Number: CHPA2013US018931

PATIENT
  Age: 48 Year
  Sex: Male

DRUGS (10)
  1. PERDIEM [Suspect]
     Indication: CONSTIPATION
     Dosage: 1 TSP, QHS
     Route: 048
     Dates: end: 201312
  2. PERDIEM [Suspect]
     Indication: FLATULENCE
     Dosage: 1 TSP, BID
  3. PERDIEM [Suspect]
     Indication: OFF LABEL USE
  4. PERDIEM OVERNIGHT RELIEF PILLS [Suspect]
     Indication: CONSTIPATION
     Dosage: 2 DF, PRN
     Route: 048
     Dates: end: 201312
  5. PERDIEM OVERNIGHT RELIEF PILLS [Suspect]
     Indication: FLATULENCE
  6. PERDIEM OVERNIGHT RELIEF PILLS [Suspect]
     Indication: OFF LABEL USE
  7. BENEFIBER UNKNOWN [Suspect]
     Indication: CONSTIPATION
     Route: 048
  8. BENEFIBER UNKNOWN [Suspect]
     Indication: OFF LABEL USE
  9. BENEFIBER UNKNOWN [Suspect]
     Indication: FLATULENCE
  10. BENEFIBER UNKNOWN [Suspect]
     Indication: OFF LABEL USE

REACTIONS (7)
  - Respiratory disorder [Recovered/Resolved]
  - Sinus polyp [Recovered/Resolved]
  - Anxiety [Recovered/Resolved]
  - Gastrointestinal pain [Recovered/Resolved]
  - Abdominal distension [Recovered/Resolved]
  - Therapeutic response unexpected [Unknown]
  - Drug ineffective for unapproved indication [Unknown]
